FAERS Safety Report 6803793-9 (Version None)
Quarter: 2010Q2

REPORT INFORMATION
  Report Type: 
  Country: None (occurrence: None)
  Receive Date: 20100628
  Receipt Date: 20100617
  Transmission Date: 20101027
  Serious: Yes (Other)
  Sender: FDA-Public Use
  Company Number: US-WYE-H15771410

PATIENT
  Sex: Female
  Weight: 83.54 kg

DRUGS (1)
  1. EFFEXOR XR [Suspect]
     Indication: MENTAL DISORDER
     Route: 048
     Dates: start: 20080101, end: 20100401

REACTIONS (15)
  - BEDRIDDEN [None]
  - BLINDNESS [None]
  - BLOOD CHOLESTEROL INCREASED [None]
  - CONDITION AGGRAVATED [None]
  - DRUG INEFFECTIVE [None]
  - DRUG WITHDRAWAL SYNDROME [None]
  - MALAISE [None]
  - MANIA [None]
  - MIGRAINE [None]
  - MOVEMENT DISORDER [None]
  - MUSCLE TIGHTNESS [None]
  - PAIN [None]
  - SUICIDAL IDEATION [None]
  - VISUAL IMPAIRMENT [None]
  - WEIGHT INCREASED [None]
